FAERS Safety Report 15109067 (Version 1)
Quarter: 2018Q3

REPORT INFORMATION
  Report Type: Spontaneous
  Country: IT (occurrence: IT)
  Receive Date: 20180705
  Receipt Date: 20180705
  Transmission Date: 20181010
  Serious: Yes (Hospitalization)
  Sender: FDA-Public Use
  Company Number: IT-AUROBINDO-AUR-APL-2018-033231

PATIENT
  Age: 56 Year
  Sex: Male

DRUGS (1)
  1. METFORMIN FILM?COATED TABLET [Suspect]
     Active Substance: METFORMIN HYDROCHLORIDE
     Indication: TYPE 2 DIABETES MELLITUS
     Dosage: 2700 MILLIGRAM, DAILY
     Route: 065

REACTIONS (1)
  - Anaemia megaloblastic [Recovering/Resolving]
